FAERS Safety Report 18683942 (Version 1)
Quarter: 2020Q4

REPORT INFORMATION
  Report Type: Spontaneous
  Country: US (occurrence: US)
  Receive Date: 20201230
  Receipt Date: 20201230
  Transmission Date: 20210114
  Serious: No
  Sender: FDA-Public Use
  Company Number: US-CURIUM-2020000503

PATIENT
  Sex: Female

DRUGS (4)
  1. MYOVIEW [Concomitant]
     Active Substance: TECHNETIUM TC-99M TETROFOSMIN
     Indication: SCAN MYOCARDIAL PERFUSION
     Route: 065
     Dates: start: 20201109, end: 20201109
  2. ULTRA-TECHNEKOW [Suspect]
     Active Substance: TECHNETIUM TC-99M
     Indication: SCAN MYOCARDIAL PERFUSION
     Route: 065
     Dates: start: 20201109, end: 20201109
  3. ULTRA-TECHNEKOW [Suspect]
     Active Substance: TECHNETIUM TC-99M
     Indication: SCAN MYOCARDIAL PERFUSION
     Route: 065
     Dates: start: 20201109, end: 20201109
  4. MYOVIEW [Concomitant]
     Active Substance: TECHNETIUM TC-99M TETROFOSMIN
     Indication: SCAN MYOCARDIAL PERFUSION
     Route: 065
     Dates: start: 20201109, end: 20201109

REACTIONS (1)
  - Scan myocardial perfusion abnormal [Recovered/Resolved]

NARRATIVE: CASE EVENT DATE: 20201109
